FAERS Safety Report 16003727 (Version 4)
Quarter: 2019Q3

REPORT INFORMATION
  Report Type: Spontaneous
  Country: GB (occurrence: GB)
  Receive Date: 20190226
  Receipt Date: 20190722
  Transmission Date: 20191004
  Serious: Yes (Other)
  Sender: FDA-Public Use
  Company Number: GB-ASTELLAS-2019US006225

PATIENT
  Age: 89 Year
  Sex: Male

DRUGS (3)
  1. BETMIGA [Suspect]
     Active Substance: MIRABEGRON
     Indication: HYPERTONIC BLADDER
     Route: 065
     Dates: start: 20180912
  2. BETMIGA [Suspect]
     Active Substance: MIRABEGRON
     Route: 048
     Dates: start: 20181009, end: 20181015
  3. BETMIGA [Suspect]
     Active Substance: MIRABEGRON
     Route: 048
     Dates: start: 20181217, end: 20190115

REACTIONS (7)
  - Lower respiratory tract infection [Recovered/Resolved]
  - Asthenia [Not Recovered/Not Resolved]
  - Hallucination [Recovered/Resolved]
  - Confusional state [Recovered/Resolved]
  - Delirium [Recovered/Resolved]
  - Dehydration [Recovered/Resolved]
  - Mobility decreased [Not Recovered/Not Resolved]

NARRATIVE: CASE EVENT DATE: 20181011
